FAERS Safety Report 15324038 (Version 2)
Quarter: 2018Q3

REPORT INFORMATION
  Report Type: Spontaneous
  Country: US (occurrence: US)
  Receive Date: 20180828
  Receipt Date: 20180912
  Transmission Date: 20181010
  Serious: No
  Sender: FDA-Public Use
  Company Number: US-B.I. PHARMACEUTICALS,INC./RIDGEFIELD-2018-BI-041719

PATIENT
  Age: 91 Year
  Sex: Female

DRUGS (1)
  1. COMBIVENT [Suspect]
     Active Substance: ALBUTEROL SULFATE\IPRATROPIUM BROMIDE
     Indication: PRODUCT USED FOR UNKNOWN INDICATION
     Dosage: STRENG:20 MCG /100 MCG;FORMUL: INHALATION SPRAY ADMINI CORRECT NR ACTION(S) TAKEN: DOSE NOT CHANGED
     Route: 055
     Dates: start: 201710

REACTIONS (4)
  - Retching [Recovered/Resolved]
  - Gastrooesophageal reflux disease [Recovered/Resolved]
  - Device malfunction [Unknown]
  - Foreign body in respiratory tract [Recovered/Resolved]

NARRATIVE: CASE EVENT DATE: 20180816
